FAERS Safety Report 9146257 (Version 3)
Quarter: 2013Q2

REPORT INFORMATION
  Report Type: Spontaneous
  Country: VE (occurrence: VE)
  Receive Date: 20130307
  Receipt Date: 20130404
  Transmission Date: 20140414
  Serious: Yes (Other)
  Sender: FDA-Public Use
  Company Number: VE-PFIZER INC-2013077867

PATIENT
  Age: 69 Year
  Sex: Female

DRUGS (2)
  1. CADUET [Suspect]
     Indication: HYPERTENSION
     Dosage: 5MG/20MG, 1X/DAY
     Route: 048
     Dates: start: 2009
  2. CADUET [Suspect]
     Indication: HYPERCHOLESTEROLAEMIA

REACTIONS (3)
  - Fall [Recovered/Resolved]
  - Upper limb fracture [Recovered/Resolved]
  - Pain [Recovered/Resolved]
